FAERS Safety Report 10178377 (Version 1)
Quarter: 2014Q2

REPORT INFORMATION
  Report Type: Spontaneous
  Country: FR (occurrence: FR)
  Receive Date: 20140519
  Receipt Date: 20140519
  Transmission Date: 20141212
  Serious: Yes (Hospitalization)
  Sender: FDA-Public Use
  Company Number: FR-RANBAXY-2014RR-81269

PATIENT
  Age: 75 Year
  Sex: Female

DRUGS (16)
  1. FLUCONAZOLE RANBAXY 50 MG GELULE [Suspect]
     Indication: PRODUCT USED FOR UNKNOWN INDICATION
     Dosage: 50 MG, QD
     Route: 048
     Dates: start: 20110707, end: 20110718
  2. LOVENOX 6000 [Concomitant]
     Indication: PRODUCT USED FOR UNKNOWN INDICATION
     Dosage: 1 INJECTION/DAY
     Route: 065
     Dates: start: 20110707, end: 20110711
  3. TAVANIC [Concomitant]
     Indication: LUNG DISORDER
     Dosage: 250 MG
     Route: 042
     Dates: start: 20110621, end: 20110627
  4. TAVANIC [Concomitant]
     Indication: LUNG DISORDER
     Dosage: UNK
     Route: 042
  5. CEFTRIAXONE SANDOZ [Concomitant]
     Indication: LUNG DISORDER
     Dosage: 2 G, QD
     Route: 042
     Dates: start: 20110624, end: 20110702
  6. OFLOXACIN ARROW [Concomitant]
     Indication: LUNG DISORDER
     Dosage: 200 MG, BID
     Route: 048
     Dates: start: 20110618, end: 20110620
  7. OROKEN [Concomitant]
     Indication: LUNG DISORDER
     Dosage: 200 MG, BID
     Route: 048
     Dates: start: 20110619, end: 20110622
  8. AMOXICILLIN/CLAVULANIC ACID SANDOZ [Concomitant]
     Indication: LUNG DISORDER
     Dosage: 1 G, BID
     Route: 042
     Dates: start: 20110615, end: 20110618
  9. SERESTA [Concomitant]
     Indication: PRODUCT USED FOR UNKNOWN INDICATION
     Dosage: 10 MG, TID
     Route: 048
  10. AMLOR [Concomitant]
     Indication: PRODUCT USED FOR UNKNOWN INDICATION
     Dosage: 5 MG, QD
     Route: 048
  11. KARDEGIC [Concomitant]
     Indication: PRODUCT USED FOR UNKNOWN INDICATION
     Dosage: 300 MG, QD
     Route: 065
  12. LASILIX [Concomitant]
     Indication: PRODUCT USED FOR UNKNOWN INDICATION
     Dosage: 20 MG, BID
     Route: 048
  13. ARANESP [Concomitant]
     Indication: PRODUCT USED FOR UNKNOWN INDICATION
     Dosage: 2.8571 UG (40 UG, 1 IN 14 DAYS)
     Route: 058
     Dates: start: 201102
  14. TAREG [Concomitant]
     Indication: PRODUCT USED FOR UNKNOWN INDICATION
     Dosage: 80 MG, QD
     Route: 048
  15. SOTALEX [Concomitant]
     Indication: PRODUCT USED FOR UNKNOWN INDICATION
     Dosage: 80 MG, QD
     Route: 048
  16. RISPERDAL [Concomitant]
     Indication: PRODUCT USED FOR UNKNOWN INDICATION
     Dosage: 0.25 MG (0.5 MG, 1 IN 2 DAYS)
     Route: 048

REACTIONS (6)
  - Agranulocytosis [Recovered/Resolved]
  - Rash generalised [Recovered/Resolved]
  - Pruritus [Recovered/Resolved]
  - Pyrexia [None]
  - Rash maculo-papular [None]
  - Neutropenia [None]
